FAERS Safety Report 5586122-0 (Version None)
Quarter: 2008Q1

REPORT INFORMATION
  Report Type: 
  Country: None (occurrence: None)
  Receive Date: 20080109
  Receipt Date: 20080102
  Transmission Date: 20080703
  Serious: Yes (Hospitalization)
  Sender: FDA-Public Use
  Company Number: US-GENENTECH-247082

PATIENT
  Sex: Male
  Weight: 61 kg

DRUGS (17)
  1. ERLOTINIB [Suspect]
     Indication: THYMOMA
     Dosage: 75 MG, QD
     Route: 048
     Dates: start: 20061017
  2. BEVACIZUMAB [Suspect]
     Indication: THYMOMA
     Dosage: 305 MG, Q2W
     Route: 042
     Dates: start: 20061031
  3. EVEROLIMUS [Suspect]
     Indication: THYMOMA
     Dosage: 5 MG, QD
     Route: 048
     Dates: start: 20061031
  4. M.V.I. [Concomitant]
     Indication: DRUG USE FOR UNKNOWN INDICATION
  5. BIOFLAVONOIDS [Concomitant]
     Indication: DRUG USE FOR UNKNOWN INDICATION
     Dosage: UNK, QD
  6. SPIRULINA [Concomitant]
     Indication: DRUG USE FOR UNKNOWN INDICATION
     Dosage: UNK, QD
  7. COUMADIN [Concomitant]
     Indication: DRUG USE FOR UNKNOWN INDICATION
     Dosage: 2 MG, QD
  8. PROTONIX [Concomitant]
     Indication: DRUG USE FOR UNKNOWN INDICATION
     Dosage: 40 MG, QD
  9. TYLENOL [Concomitant]
     Indication: DRUG USE FOR UNKNOWN INDICATION
     Dosage: UNK, PRN
  10. LYSINE [Concomitant]
     Indication: DRUG USE FOR UNKNOWN INDICATION
     Dosage: UNK, PRN
  11. MELATONIN [Concomitant]
     Dosage: UNK, PRN
  12. OXYCODONE [Concomitant]
     Indication: DRUG USE FOR UNKNOWN INDICATION
     Dosage: 5 MG, PRN
     Route: 048
  13. AUGMENTIN '250' [Concomitant]
     Indication: DRUG USE FOR UNKNOWN INDICATION
     Dosage: 875 MG, BID
     Dates: start: 20061210
  14. SENOKOT [Concomitant]
     Indication: DRUG USE FOR UNKNOWN INDICATION
     Dosage: UNK TABLET, BID
  15. CIPRO [Concomitant]
     Dosage: UNK, UNK
  16. FLUCONAZOLE [Concomitant]
     Indication: DRUG USE FOR UNKNOWN INDICATION
     Dates: start: 20061207
  17. OXYCONTIN [Concomitant]
     Indication: DRUG USE FOR UNKNOWN INDICATION
     Dosage: 10 MG, PRN
     Route: 048

REACTIONS (3)
  - DERMATITIS ACNEIFORM [None]
  - MUCOSAL INFLAMMATION [None]
  - PERIRECTAL ABSCESS [None]
